FAERS Safety Report 5288615-2 (Version None)
Quarter: 2007Q2

REPORT INFORMATION
  Report Type: 
  Country: None (occurrence: None)
  Receive Date: 20070405
  Receipt Date: 20070329
  Transmission Date: 20071010
  Serious: Yes (Other)
  Sender: FDA-Public Use
  Company Number: JP-ELI_LILLY_AND_COMPANY-JP200704000051

PATIENT
  Sex: Male

DRUGS (4)
  1. PEMETREXED [Suspect]
     Indication: PLEURAL MESOTHELIOMA MALIGNANT
     Route: 042
     Dates: start: 20070313, end: 20070313
  2. CISPLATIN [Suspect]
     Indication: PLEURAL MESOTHELIOMA MALIGNANT
     Route: 042
     Dates: start: 20070313, end: 20070313
  3. PANVITAN [Concomitant]
  4. HYDROXOCOBALAMIN ACETATE [Concomitant]

REACTIONS (1)
  - INTERSTITIAL LUNG DISEASE [None]
